FAERS Safety Report 8508826-X (Version None)
Quarter: 2012Q3

REPORT INFORMATION
  Report Type: 
  Country: None (occurrence: None)
  Receive Date: 20120713
  Receipt Date: 20120706
  Transmission Date: 20120928
  Serious: Yes (Other)
  Sender: FDA-Public Use
  Company Number: BR-PFIZER INC-2012162580

PATIENT
  Age: 55 Year
  Sex: Female
  Weight: 75 kg

DRUGS (6)
  1. SERTRALINE HYDROCHLORIDE [Concomitant]
     Indication: DEPRESSION
     Dosage: 0.5 MG, 1X/DAY
     Dates: start: 20070101
  2. OSCAL D [Concomitant]
     Indication: CALCIUM DEFICIENCY
     Dosage: TWO UNITS DAILY
     Dates: start: 20060101
  3. BONALEN [Concomitant]
     Indication: VITAMIN D
     Dosage: ONE UNIT WEEKLY
     Dates: start: 20070101
  4. DEPAKOTE ER [Concomitant]
     Dosage: ONE UNIT DAILY
     Dates: start: 20070101
  5. AROMASIN [Suspect]
     Indication: NEOPLASM MALIGNANT
     Dosage: 25 MG, 1X/DAY
     Route: 048
     Dates: start: 20080518
  6. ALPRAZOLAM [Concomitant]
     Indication: RELAXATION THERAPY
     Dosage: 1 MG, 1X/DAY
     Dates: start: 20100101

REACTIONS (3)
  - INTERVERTEBRAL DISC COMPRESSION [None]
  - PULMONARY EMBOLISM [None]
  - THROMBOSIS [None]
